FAERS Safety Report 4646054-9 (Version None)
Quarter: 2005Q2

REPORT INFORMATION
  Report Type: 
  Country: None (occurrence: None)
  Receive Date: 20050425
  Receipt Date: 20050419
  Transmission Date: 20051028
  Serious: Yes (Disabling)
  Sender: FDA-Public Use
  Company Number: GBWYE339313JAN05

PATIENT
  Age: 48 Year
  Sex: Female

DRUGS (7)
  1. EFFEXOR XR [Suspect]
     Indication: DEPRESSION
     Dosage: SEE IMAGE
     Route: 048
     Dates: start: 20030224, end: 20030501
  2. EFFEXOR XR [Suspect]
     Indication: DEPRESSION
     Dosage: SEE IMAGE
     Route: 048
     Dates: start: 20030501, end: 20030601
  3. LITHIUM CARBONATE [Concomitant]
  4. SERTRALINE (SERTRALINE) [Concomitant]
  5. ZOPICLONE (ZOPICLONE) [Concomitant]
  6. DICLOFENAC SODIUM [Concomitant]
  7. TRAMADOL HCL [Concomitant]

REACTIONS (4)
  - ABDOMINAL DISTENSION [None]
  - ANOREXIA [None]
  - DYSPEPSIA [None]
  - HELICOBACTER INFECTION [None]
